FAERS Safety Report 17694535 (Version 1)
Quarter: 2020Q2

REPORT INFORMATION
  Report Type: Spontaneous
  Country: US (occurrence: US)
  Receive Date: 20200422
  Receipt Date: 20200422
  Transmission Date: 20200714
  Serious: Yes (Congenital Anomaly, Other)
  Sender: FDA-Public Use
  Company Number: NVSC2020US106836

PATIENT
  Age: 0 Day
  Sex: Female

DRUGS (1)
  1. ZOFRAN [Suspect]
     Active Substance: ONDANSETRON HYDROCHLORIDE
     Indication: FOETAL EXPOSURE DURING PREGNANCY
     Route: 064

REACTIONS (11)
  - Hydrocephalus [Unknown]
  - Congenital anomaly [Unknown]
  - Pain [Not Recovered/Not Resolved]
  - Anhedonia [Unknown]
  - Foetal exposure during pregnancy [Unknown]
  - Cleft palate [Unknown]
  - Trisomy 21 [Unknown]
  - Injury [Unknown]
  - Anxiety [Unknown]
  - Premature baby [Unknown]
  - Developmental delay [Unknown]

NARRATIVE: CASE EVENT DATE: 20190101
